FAERS Safety Report 8848645 (Version 2)
Quarter: 2013Q1

REPORT INFORMATION
  Report Type: Spontaneous
  Country: PE (occurrence: None)
  Receive Date: 20121015
  Receipt Date: 20121109
  Transmission Date: 20140127
  Serious: Yes (Other)
  Sender: FDA-Public Use
  Company Number: AUR-APL-2012-04358

PATIENT
  Age: 39 Year
  Sex: Male

DRUGS (8)
  1. STAVUDINE [Suspect]
     Indication: ANTIRETROVIRAL THERAPY
  2. EFAVIRENZ [Suspect]
  3. LAMIVUDINE [Suspect]
  4. RITONAVIR\SAQUINAVIR [Suspect]
  5. ISONIAZID (ISONIAZID) [Concomitant]
  6. RIFAMPICIN (RIFAMPICIN) [Concomitant]
  7. ETHAMUBTOL (ETHAMBUTOL) [Concomitant]
  8. PYRAZINAMIDE (PYRAZINAMIE) [Concomitant]

REACTIONS (1)
  - Leukoencephalopathy [None]
